FAERS Safety Report 5572476-8 (Version None)
Quarter: 2007Q4

REPORT INFORMATION
  Report Type: 
  Country: None (occurrence: None)
  Receive Date: 20071222
  Receipt Date: 20071211
  Transmission Date: 20080405
  Serious: Yes (Other)
  Sender: FDA-Public Use
  Company Number: US-PFIZER INC-2007106079

PATIENT
  Sex: Female
  Weight: 65.909 kg

DRUGS (1)
  1. CHANTIX [Suspect]
     Indication: EX-SMOKER
     Route: 048
     Dates: start: 20071115, end: 20071130

REACTIONS (3)
  - DEPRESSION [None]
  - INTENTIONAL DRUG MISUSE [None]
  - PANIC ATTACK [None]
